FAERS Safety Report 13339219 (Version 1)
Quarter: 2017Q1

REPORT INFORMATION
  Report Type: Spontaneous
  Country: US (occurrence: US)
  Receive Date: 20170315
  Receipt Date: 20170315
  Transmission Date: 20170428
  Serious: Yes (Hospitalization, Other)
  Sender: FDA-Public Use
  Company Number: US-BAUSCH-BL-2017-006166

PATIENT
  Age: 74 Year
  Sex: Male

DRUGS (4)
  1. VASOTEC [Suspect]
     Active Substance: ENALAPRIL MALEATE
     Route: 048
  2. ATIVAN [Concomitant]
     Active Substance: LORAZEPAM
     Indication: ANXIETY
     Dosage: HALF TABLET
     Route: 048
  3. VASOTEC [Suspect]
     Active Substance: ENALAPRIL MALEATE
     Indication: HYPERTENSION
     Route: 048
     Dates: start: 1982
  4. VASOTEC [Suspect]
     Active Substance: ENALAPRIL MALEATE
     Route: 048

REACTIONS (3)
  - Blood pressure increased [Unknown]
  - Treatment noncompliance [Unknown]
  - Blood pressure decreased [Unknown]

NARRATIVE: CASE EVENT DATE: 2016
